FAERS Safety Report 8131183-8 (Version None)
Quarter: 2012Q1

REPORT INFORMATION
  Report Type: 
  Country: None (occurrence: None)
  Receive Date: 20120213
  Receipt Date: 20120201
  Transmission Date: 20120608
  Serious: Yes (Other)
  Sender: FDA-Public Use
  Company Number: JP-JNJFOC-20120203494

PATIENT
  Age: 71 Year
  Sex: Male
  Weight: 52 kg

DRUGS (17)
  1. REMICADE [Suspect]
     Route: 042
     Dates: start: 20110916
  2. ASPARA-K [Suspect]
     Indication: ELECTROLYTE SUBSTITUTION THERAPY
     Route: 065
     Dates: start: 20111231, end: 20120104
  3. AMINO ACID INJ [Suspect]
     Indication: NUTRITIONAL SUPPORT
     Route: 065
     Dates: start: 20111222, end: 20120123
  4. REMICADE [Suspect]
     Route: 042
     Dates: start: 20111221
  5. INTRALIPID 10% [Suspect]
     Indication: NUTRITIONAL SUPPORT
     Route: 065
     Dates: start: 20110811
  6. REMICADE [Suspect]
     Route: 042
     Dates: start: 20120104
  7. ROHYPNOL [Concomitant]
     Route: 042
  8. REMICADE [Suspect]
     Indication: POUCHITIS
     Route: 042
     Dates: start: 20111221
  9. PREDONEMA [Concomitant]
     Route: 065
  10. REMICADE [Suspect]
     Route: 042
     Dates: start: 20120104
  11. REMICADE [Suspect]
     Indication: COLITIS ULCERATIVE
     Route: 042
     Dates: start: 20110916
  12. CIPROFLOXACIN HCL [Suspect]
     Indication: COLITIS ULCERATIVE
     Route: 065
     Dates: start: 20111222, end: 20120105
  13. FULCALIQ [Suspect]
     Indication: NUTRITIONAL SUPPORT
     Route: 065
     Dates: start: 20111231, end: 20120104
  14. PENTASA [Concomitant]
     Route: 065
  15. MORPHINE [Suspect]
     Indication: POSTOPERATIVE ANALGESIA
     Dosage: DOSAGE 0.5 VIALX1 TO 4 TIMES
     Route: 030
     Dates: start: 20111228, end: 20120104
  16. CEFMETAZON [Suspect]
     Indication: INFECTION
     Route: 065
     Dates: start: 20111231, end: 20120109
  17. LANSOPRAZOLE [Concomitant]
     Route: 048

REACTIONS (8)
  - FLUSHING [None]
  - PALPITATIONS [None]
  - ARRHYTHMIA [None]
  - ABDOMINAL DISCOMFORT [None]
  - DIZZINESS [None]
  - INFUSION RELATED REACTION [None]
  - SURGERY [None]
  - DYSPNOEA [None]
